FAERS Safety Report 25315234 (Version 1)
Quarter: 2025Q2

REPORT INFORMATION
  Report Type: Spontaneous
  Country: NL (occurrence: NL)
  Receive Date: 20250514
  Receipt Date: 20250514
  Transmission Date: 20250716
  Serious: Yes (Death)
  Sender: ALEXION PHARMACEUTICALS
  Company Number: None

PATIENT
  Age: 83 Year
  Weight: 62 kg

DRUGS (15)
  1. TICAGRELOR [Interacting]
     Active Substance: TICAGRELOR
     Indication: Chest pain
     Dosage: 90 MILLIGRAM, Q12H
  2. TICAGRELOR [Interacting]
     Active Substance: TICAGRELOR
     Indication: Acute myocardial infarction
  3. ROSUVASTATIN [Interacting]
     Active Substance: ROSUVASTATIN
     Indication: Hypercholesterolaemia
     Dosage: 40 MILLIGRAM, QD
  4. Isosorbidedinitraat [Concomitant]
  5. PERINDOPRIL [Concomitant]
     Active Substance: PERINDOPRIL
  6. METOPROLOL [Concomitant]
     Active Substance: METOPROLOL
  7. DIAZEPAM [Concomitant]
     Active Substance: DIAZEPAM
  8. ISOSORBIDE MONONITRATE [Concomitant]
     Active Substance: ISOSORBIDE MONONITRATE
  9. ASPIRIN [Concomitant]
     Active Substance: ASPIRIN
  10. PANTOPRAZOLE SODIUM [Concomitant]
     Active Substance: PANTOPRAZOLE SODIUM
  11. HYDROCHLOROTHIAZIDE [Concomitant]
     Active Substance: HYDROCHLOROTHIAZIDE
  12. TIOTROPIUM [Concomitant]
     Active Substance: TIOTROPIUM
  13. OXAZEPAM [Concomitant]
     Active Substance: OXAZEPAM
  14. DOMPERIDONE [Concomitant]
     Active Substance: DOMPERIDONE
  15. BECLOMETHASONE DIPROPIONATE [Concomitant]
     Active Substance: BECLOMETHASONE DIPROPIONATE

REACTIONS (2)
  - Rhabdomyolysis [Fatal]
  - Drug interaction [Fatal]
